FAERS Safety Report 7938562-X (Version None)
Quarter: 2011Q4

REPORT INFORMATION
  Report Type: 
  Country: None (occurrence: None)
  Receive Date: 20111123
  Receipt Date: 20111114
  Transmission Date: 20120403
  Serious: Yes (Hospitalization)
  Sender: FDA-Public Use
  Company Number: US-BAXTER-2011BH036248

PATIENT
  Age: 58 Year
  Sex: Female

DRUGS (2)
  1. GAMMAGARD LIQUID [Suspect]
     Indication: HYPOGAMMAGLOBULINAEMIA
     Route: 042
     Dates: start: 20111109, end: 20111109
  2. GAMMAGARD LIQUID [Suspect]
     Route: 065
     Dates: start: 20020101

REACTIONS (12)
  - DYSPNOEA [None]
  - LETHARGY [None]
  - BLOOD PRESSURE INCREASED [None]
  - URTICARIA [None]
  - RESPIRATORY TRACT CONGESTION [None]
  - MASS [None]
  - PYREXIA [None]
  - HEADACHE [None]
  - PRURITUS [None]
  - INJECTION SITE HAEMATOMA [None]
  - VISION BLURRED [None]
  - FLUSHING [None]
